FAERS Safety Report 9977432 (Version 1)
Quarter: 2014Q1

REPORT INFORMATION
  Report Type: Report from Study
  Country: US (occurrence: US)
  Receive Date: 20140306
  Receipt Date: 20140306
  Transmission Date: 20141002
  Serious: No
  Sender: FDA-Public Use
  Company Number: US-ABBVIE-13P-163-1162403-00

PATIENT
  Age: 64 Year
  Sex: Male
  Weight: 68.1 kg

DRUGS (8)
  1. HUMIRA [Suspect]
     Indication: PSORIATIC ARTHROPATHY
     Route: 058
     Dates: start: 2011, end: 201211
  2. HUMIRA [Suspect]
     Route: 058
     Dates: start: 201301
  3. OMEPRAZOLE [Concomitant]
     Indication: GASTROOESOPHAGEAL REFLUX DISEASE
  4. BARACLUDE [Concomitant]
     Indication: HEPATITIS B
  5. HEPSERA [Concomitant]
     Indication: HEPATITIS B
  6. ATENOLOL [Concomitant]
     Indication: HYPERTENSION
  7. AMLODIPINE [Concomitant]
     Indication: HYPERTENSION
  8. ENALAPRIL [Concomitant]
     Indication: HYPERTENSION

REACTIONS (1)
  - Psoriasis [Recovering/Resolving]
